FAERS Safety Report 9230345 (Version 1)
Quarter: 2013Q1

REPORT INFORMATION
  Report Type: Spontaneous
  Country: US (occurrence: None)
  Receive Date: 20121019
  Receipt Date: 20121019
  Transmission Date: 20140127
  Serious: Yes (Other)
  Sender: FDA-Public Use
  Company Number: 2012P1052257

PATIENT
  Age: 100 Year
  Sex: Female

DRUGS (1)
  1. FENTANYL PATCH [Suspect]
     Indication: PAIN

REACTIONS (3)
  - Dysphagia [None]
  - Dysuria [None]
  - Hallucination, auditory [None]
